FAERS Safety Report 5723406-7 (Version None)
Quarter: 2008Q2

REPORT INFORMATION
  Report Type: 
  Country: None (occurrence: None)
  Receive Date: 20080429
  Receipt Date: 20080429
  Transmission Date: 20081010
  Serious: Yes (Other)
  Sender: FDA-Public Use
  Company Number: None

PATIENT
  Age: 60 Year
  Sex: Male
  Weight: 62 kg

DRUGS (14)
  1. ZOMETA [Suspect]
     Indication: METASTASES TO BONE
     Dosage: 4MG EVERY 21 DAYS IV
     Route: 042
     Dates: start: 20070628, end: 20080312
  2. BEVACIZUMAB [Concomitant]
  3. CARBOPLATIN [Concomitant]
  4. PACLITAXEL [Concomitant]
  5. EMEND [Concomitant]
  6. DEXAMETHASONE [Concomitant]
  7. DIPHENHYDRAMINE HCL [Concomitant]
  8. ONDANSETRON [Concomitant]
  9. COUMADIN [Concomitant]
  10. CALTRATE-D [Concomitant]
  11. COMPAZINE [Concomitant]
  12. VICODIN [Concomitant]
  13. PEPCID AC [Concomitant]
  14. MULTI-VITAMIN [Concomitant]

REACTIONS (2)
  - LOOSE TOOTH [None]
  - OSTEONECROSIS [None]
